FAERS Safety Report 18366493 (Version 1)
Quarter: 2020Q4

REPORT INFORMATION
  Report Type: Spontaneous
  Country: FR (occurrence: FR)
  Receive Date: 20201009
  Receipt Date: 20201009
  Transmission Date: 20210114
  Serious: Yes (Hospitalization, Other)
  Sender: FDA-Public Use
  Company Number: FR-MYLANLABS-2019M1128282

PATIENT
  Age: 82 Year
  Sex: Female

DRUGS (3)
  1. LINEZOLID. [Suspect]
     Active Substance: LINEZOLID
     Indication: PYELONEPHRITIS
     Dosage: 1200 MILLIGRAM, QD
     Route: 048
     Dates: start: 20200717, end: 20200804
  2. LINEZOLID. [Suspect]
     Active Substance: LINEZOLID
     Indication: OSTEITIS
     Dosage: 1200 MILLIGRAM, QD
     Route: 048
     Dates: start: 20190926, end: 20191014
  3. LEVOFLOXACIN. [Suspect]
     Active Substance: LEVOFLOXACIN
     Indication: PYELONEPHRITIS
     Dosage: 1 GRAM, QD
     Route: 048
     Dates: start: 20200717, end: 20200804

REACTIONS (3)
  - Anaemia [Recovering/Resolving]
  - Neutropenia [Recovered/Resolved]
  - Thrombocytopenia [Recovered/Resolved]

NARRATIVE: CASE EVENT DATE: 20190930
